FAERS Safety Report 20363688 (Version 1)
Quarter: 2022Q1

REPORT INFORMATION
  Report Type: Report from Study
  Country: DE (occurrence: DE)
  Receive Date: 20220121
  Receipt Date: 20220121
  Transmission Date: 20220423
  Serious: Yes (Hospitalization, Other)
  Sender: FDA-Public Use
  Company Number: DE-MYLANLABS-2022M1005741

PATIENT
  Age: 61 Year
  Sex: Female

DRUGS (12)
  1. DOXORUBICIN [Suspect]
     Active Substance: DOXORUBICIN
     Indication: Pleomorphic leiomyosarcoma
     Dosage: UNK, CYCLE
     Route: 065
  2. GEMCITABINE [Suspect]
     Active Substance: GEMCITABINE
     Indication: Pleomorphic leiomyosarcoma
     Dosage: UNK, CYCLE, PART OF COMBINED THERAPY
     Route: 065
  3. GEMCITABINE [Suspect]
     Active Substance: GEMCITABINE
     Indication: Leiomyosarcoma metastatic
  4. GEMCITABINE [Suspect]
     Active Substance: GEMCITABINE
     Indication: Pleomorphic leiomyosarcoma
     Dosage: MAINTENANCE MONOTHERAPY; 900 MG/M2 ADMINISTERED ON DAYS 1 AND 8 WITH REPETITION....
  5. GEMCITABINE [Suspect]
     Active Substance: GEMCITABINE
     Indication: Leiomyosarcoma metastatic
  6. DOCETAXEL [Suspect]
     Active Substance: DOCETAXEL
     Indication: Pleomorphic leiomyosarcoma
     Dosage: UNK, CYCLE, PART OF COMBINED THERAPY
     Route: 065
  7. DOCETAXEL [Suspect]
     Active Substance: DOCETAXEL
     Indication: Leiomyosarcoma metastatic
  8. IFOSFAMIDE [Suspect]
     Active Substance: IFOSFAMIDE
     Indication: Pleomorphic leiomyosarcoma
     Dosage: UNK, CYCLE
     Route: 065
  9. PAZOPANIB [Suspect]
     Active Substance: PAZOPANIB
     Indication: Pleomorphic leiomyosarcoma
     Dosage: UNK
     Route: 065
  10. PAZOPANIB [Suspect]
     Active Substance: PAZOPANIB
     Indication: Leiomyosarcoma metastatic
  11. TRABECTEDIN [Suspect]
     Active Substance: TRABECTEDIN
     Indication: Pleomorphic leiomyosarcoma
     Dosage: UNK
     Route: 065
  12. TRABECTEDIN [Suspect]
     Active Substance: TRABECTEDIN
     Indication: Leiomyosarcoma metastatic

REACTIONS (4)
  - Drug ineffective [Unknown]
  - Neutropenia [Unknown]
  - Leukopenia [Unknown]
  - Off label use [Unknown]
